FAERS Safety Report 25405853 (Version 1)
Quarter: 2025Q2

REPORT INFORMATION
  Report Type: Spontaneous
  Country: US (occurrence: US)
  Receive Date: 20250606
  Receipt Date: 20250606
  Transmission Date: 20250717
  Serious: Yes (Hospitalization)
  Sender: NOVITIUM PHARMA
  Company Number: US-NOVITIUMPHARMA-2025USNVP01298

PATIENT
  Age: 18 Month
  Sex: Male

DRUGS (17)
  1. PREDNISONE [Suspect]
     Active Substance: PREDNISONE
     Indication: Still^s disease
  2. ANAKINRA [Concomitant]
     Active Substance: ANAKINRA
     Indication: Still^s disease
  3. TOCILIZUMAB [Concomitant]
     Active Substance: TOCILIZUMAB
     Indication: Still^s disease
  4. CANAKINUMAB [Concomitant]
     Active Substance: CANAKINUMAB
     Indication: Still^s disease
  5. MYCOPHENOLIC ACID [Concomitant]
     Active Substance: MYCOPHENOLIC ACID
     Indication: Still^s disease
  6. RILONACEPT [Concomitant]
     Active Substance: RILONACEPT
     Indication: Still^s disease
  7. CYCLOSPORINE [Concomitant]
     Active Substance: CYCLOSPORINE
     Indication: Still^s disease
  8. TOFACITINIB [Concomitant]
     Active Substance: TOFACITINIB
     Indication: Still^s disease
  9. METHYLPREDNISOLONE [Concomitant]
     Active Substance: METHYLPREDNISOLONE
     Indication: Still^s disease
  10. METHYLPREDNISOLONE [Concomitant]
     Active Substance: METHYLPREDNISOLONE
     Indication: Prophylaxis against graft versus host disease
  11. CYCLOPHOSPHAMIDE [Concomitant]
     Active Substance: CYCLOPHOSPHAMIDE
     Indication: Still^s disease
  12. GANCICLOVIR [Concomitant]
     Active Substance: GANCICLOVIR
     Indication: Transplant
  13. BUSULFAN [Concomitant]
     Active Substance: BUSULFAN
     Indication: Transplant
  14. FLUDARABINE [Concomitant]
     Active Substance: FLUDARABINE PHOSPHATE
     Indication: Transplant
  15. THYMOCYTE IMMUNE GLOBULIN NOS [Concomitant]
     Active Substance: THYMOCYTE IMMUNE GLOBULIN NOS
     Indication: Transplant
  16. RITUXIMAB [Concomitant]
     Active Substance: RITUXIMAB
     Indication: Transplant
  17. TACROLIMUS [Concomitant]
     Active Substance: TACROLIMUS
     Indication: Prophylaxis against graft versus host disease

REACTIONS (2)
  - Cytomegalovirus infection [Unknown]
  - Steroid dependence [Unknown]
